FAERS Safety Report 14998467 (Version 1)
Quarter: 2018Q2

REPORT INFORMATION
  Report Type: Spontaneous
  Country: US (occurrence: US)
  Receive Date: 20180611
  Receipt Date: 20180611
  Transmission Date: 20180711
  Serious: No
  Sender: FDA-Public Use
  Company Number: PHEH2018US022317

PATIENT
  Sex: Male

DRUGS (2)
  1. LATANOPROST. [Suspect]
     Active Substance: LATANOPROST
     Indication: GLAUCOMA
     Dosage: 1 GTT, QD
     Route: 047
  2. LATANOPROST. [Suspect]
     Active Substance: LATANOPROST
     Dosage: 1 GTT, QD
     Route: 047

REACTIONS (3)
  - Visual acuity reduced [Unknown]
  - Product packaging quantity issue [Unknown]
  - Eye disorder [Unknown]
